FAERS Safety Report 12194297 (Version 1)
Quarter: 2016Q1

REPORT INFORMATION
  Report Type: Spontaneous
  Country: NL (occurrence: NL)
  Receive Date: 20160321
  Receipt Date: 20160321
  Transmission Date: 20160526
  Serious: Yes (Life-Threatening, Hospitalization)
  Sender: FDA-Public Use
  Company Number: NL-TEVA-643324ISR

PATIENT
  Age: 38 Year
  Sex: Male

DRUGS (2)
  1. NORTRIPTYLINE [Suspect]
     Active Substance: NORTRIPTYLINE
     Indication: SUICIDE ATTEMPT
     Dosage: 25 TABLETS OF 25MG (TOTAL OF 1375MG)
     Route: 048
  2. ZOLPIDEM [Suspect]
     Active Substance: ZOLPIDEM\ZOLPIDEM TARTRATE
     Indication: SUICIDE ATTEMPT
     Dosage: 10 TABLETS OF 10MG (TOTAL OF 100MG)
     Route: 048

REACTIONS (9)
  - Toxicity to various agents [Recovering/Resolving]
  - Ventricular arrhythmia [Recovering/Resolving]
  - Seizure [Recovering/Resolving]
  - Somnolence [Unknown]
  - Obstructive airways disorder [Recovering/Resolving]
  - Intentional overdose [Recovering/Resolving]
  - Hyperthermia [Unknown]
  - Hepatotoxicity [Recovered/Resolved]
  - Suicide attempt [Recovering/Resolving]
